FAERS Safety Report 6304068-7 (Version None)
Quarter: 2009Q3

REPORT INFORMATION
  Report Type: 
  Country: None (occurrence: None)
  Receive Date: 20090810
  Receipt Date: 20090810
  Transmission Date: 20100115
  Serious: Yes (Life-Threatening, Other)
  Sender: FDA-Public Use
  Company Number: None

PATIENT
  Age: 21 Year
  Sex: Male
  Weight: 106.5953 kg

DRUGS (1)
  1. CIGARETTE [Suspect]
     Dosage: 464  64364  VAG
     Route: 067
     Dates: start: 19901019, end: 19961018

REACTIONS (1)
  - HAEMOPTYSIS [None]
